FAERS Safety Report 6014680-0 (Version None)
Quarter: 2008Q4

REPORT INFORMATION
  Report Type: 
  Country: None (occurrence: None)
  Receive Date: 20081216
  Receipt Date: 20080811
  Transmission Date: 20090506
  Serious: Yes (Other)
  Sender: FDA-Public Use
  Company Number: US-WYE-H05506708

PATIENT
  Age: 44 Year
  Sex: Female
  Weight: 72.64 kg

DRUGS (5)
  1. EFFEXOR XR [Suspect]
     Indication: DEPRESSION
     Dosage: ^WEANED OFF EFFEXOR XR^, ORAL : ORAL
     Route: 048
     Dates: start: 20030101, end: 20080101
  2. EFFEXOR XR [Suspect]
     Indication: DEPRESSION
     Dosage: ^WEANED OFF EFFEXOR XR^, ORAL : ORAL
     Route: 048
     Dates: start: 20080101, end: 20080701
  3. XANAX [Concomitant]
  4. HYDROCODONE (HYDROCODONE) [Concomitant]
  5. ADDERALL (AMFETAMINE ASPARTATE/AFETAMINE SULFATE/DEXAMFETAMINE SACCHAR [Concomitant]

REACTIONS (5)
  - ANXIETY [None]
  - CEREBROVASCULAR ACCIDENT [None]
  - DRUG WITHDRAWAL SYNDROME [None]
  - DYSPNOEA [None]
  - HYPERTENSION [None]
